FAERS Safety Report 7416997-1 (Version None)
Quarter: 2011Q2

REPORT INFORMATION
  Report Type: 
  Country: None (occurrence: None)
  Receive Date: 20110406
  Receipt Date: 20110322
  Transmission Date: 20111010
  Serious: Yes (Life-Threatening, Hospitalization)
  Sender: FDA-Public Use
  Company Number: AUR-APL-2011-00886

PATIENT
  Age: 69 Year
  Sex: Male

DRUGS (8)
  1. IBUPROFEN [Suspect]
     Indication: TOOTHACHE
     Dosage: ORAL
     Route: 048
     Dates: start: 20110121, end: 20110126
  2. ACETYLSALICYLIC ACID SRT [Concomitant]
  3. METOCLOPRAMIDE [Concomitant]
  4. METFORMIN HCL [Suspect]
     Dosage: 500MG-TID-ORAL
     Route: 048
     Dates: start: 20110105, end: 20110126
  5. SIMVASTATIN [Concomitant]
  6. TIMOLOL [Concomitant]
  7. BENDROFLUMETHIAZIDE [Concomitant]
  8. AMLODIPINE [Concomitant]

REACTIONS (4)
  - RENAL FAILURE ACUTE [None]
  - HYPONATRAEMIA [None]
  - DIARRHOEA [None]
  - HAEMODIALYSIS [None]
